FAERS Safety Report 11182252 (Version 1)
Quarter: 2015Q2

REPORT INFORMATION
  Report Type: Spontaneous
  Country: US (occurrence: US)
  Receive Date: 20150611
  Receipt Date: 20150611
  Transmission Date: 20150821
  Serious: No
  Sender: FDA-Public Use
  Company Number: US-ASTELLAS-2015US010251

PATIENT
  Age: 74 Year
  Sex: Male

DRUGS (1)
  1. XTANDI [Suspect]
     Active Substance: ENZALUTAMIDE
     Indication: PRODUCT USED FOR UNKNOWN INDICATION
     Route: 065
     Dates: end: 201407

REACTIONS (5)
  - Disturbance in attention [Unknown]
  - Sluggishness [Unknown]
  - Gastrointestinal disorder [Unknown]
  - Asthenia [Unknown]
  - Back pain [Unknown]
